FAERS Safety Report 21936112 (Version 1)
Quarter: 2023Q1

REPORT INFORMATION
  Report Type: Report from Study
  Country: FR (occurrence: None)
  Receive Date: 20230201
  Receipt Date: 20230201
  Transmission Date: 20230417
  Serious: Yes (Death)
  Sender: FDA-Public Use
  Company Number: 2022A419151

PATIENT
  Age: 764 Month
  Sex: Male
  Weight: 65 kg

DRUGS (3)
  1. EVUSHELD [Suspect]
     Active Substance: CILGAVIMAB\TIXAGEVIMAB
     Indication: COVID-19 prophylaxis
     Dosage: DOSE UNKNOWN-1ST DOSE, ONCE/SINGLE ADMINISTRATION
     Route: 030
     Dates: start: 20220905, end: 20220905
  2. RITUXIMAB [Concomitant]
     Active Substance: RITUXIMAB
     Indication: Immunosuppressant drug therapy
  3. CORTISONE [Concomitant]
     Active Substance: CORTISONE
     Indication: Immunosuppressant drug therapy

REACTIONS (1)
  - Acute myeloid leukaemia [Fatal]

NARRATIVE: CASE EVENT DATE: 20221026
